FAERS Safety Report 6554379-5 (Version None)
Quarter: 2010Q1

REPORT INFORMATION
  Report Type: 
  Country: None (occurrence: None)
  Receive Date: 20100127
  Receipt Date: 20100125
  Transmission Date: 20100710
  Serious: Yes (Hospitalization)
  Sender: FDA-Public Use
  Company Number: D0063616A

PATIENT
  Sex: Female
  Weight: 65 kg

DRUGS (4)
  1. ATMADISC [Suspect]
     Indication: CHRONIC OBSTRUCTIVE PULMONARY DISEASE
     Route: 055
     Dates: start: 20080424, end: 20080513
  2. PROVAS [Suspect]
     Route: 065
     Dates: start: 20080501, end: 20090812
  3. BISOPROLOL FUMARATE [Suspect]
     Dosage: 5MG PER DAY
     Route: 065
     Dates: start: 20020101, end: 20091007
  4. ASPIRIN [Concomitant]
     Indication: RETINAL INFARCTION
     Dosage: 100MG PER DAY
     Route: 065
     Dates: start: 20020201

REACTIONS (15)
  - BLISTER [None]
  - BLOOD CHOLESTEROL INCREASED [None]
  - BREAST DISCHARGE [None]
  - CANDIDIASIS [None]
  - CONJUNCTIVITIS [None]
  - ECZEMA NUMMULAR [None]
  - EOSINOPHIL COUNT INCREASED [None]
  - LEUKOCYTOSIS [None]
  - MUCOSAL INFLAMMATION [None]
  - NEUTROPHIL COUNT INCREASED [None]
  - PEMPHIGOID [None]
  - PRURITUS [None]
  - PSORIASIS [None]
  - STAPHYLOCOCCAL SKIN INFECTION [None]
  - TRANSAMINASES INCREASED [None]
